FAERS Safety Report 11247126 (Version 1)
Quarter: 2015Q3

REPORT INFORMATION
  Report Type: Spontaneous
  Country: US (occurrence: None)
  Receive Date: 20150706
  Receipt Date: 20150706
  Transmission Date: 20151125
  Serious: Yes (Death, Other)
  Sender: FDA-Public Use
  Company Number: ADR-2015-01244

PATIENT
  Age: 76 Year
  Sex: Female

DRUGS (4)
  1. ZICONOTIDE INTRATHECAL [Suspect]
     Active Substance: ZICONOTIDE
  2. BUPIVACAINE INTRATHECAL [Suspect]
     Active Substance: BUPIVACAINE
  3. BACLOFEN INTRATHECAL [Suspect]
     Active Substance: BACLOFEN
  4. HYDROMORPHONE INTRATHECAL [Suspect]
     Active Substance: HYDROMORPHONE

REACTIONS (3)
  - Device physical property issue [None]
  - Device colour issue [None]
  - Device damage [None]
